FAERS Safety Report 6120728-5 (Version None)
Quarter: 2009Q1

REPORT INFORMATION
  Report Type: 
  Country: None (occurrence: None)
  Receive Date: 20090317
  Receipt Date: 20090310
  Transmission Date: 20090719
  Serious: Yes (Hospitalization)
  Sender: FDA-Public Use
  Company Number: US-ELI_LILLY_AND_COMPANY-US200903000756

PATIENT
  Sex: Male

DRUGS (5)
  1. BYETTA [Suspect]
     Indication: TYPE 2 DIABETES MELLITUS
     Dosage: 5 UG, 2/D
     Dates: start: 20081101, end: 20090210
  2. BYETTA [Suspect]
     Dosage: 10 UG, 2/D
     Dates: start: 20090210, end: 20090201
  3. INSULIN [Concomitant]
  4. GLIMEPIRIDE [Concomitant]
  5. ENALAPRIL [Concomitant]

REACTIONS (1)
  - PANCREATITIS [None]
